FAERS Safety Report 9367124 (Version 2)
Quarter: 2013Q3

REPORT INFORMATION
  Report Type: Spontaneous
  Country: FR (occurrence: FR)
  Receive Date: 20130625
  Receipt Date: 20130805
  Transmission Date: 20140515
  Serious: Yes (Hospitalization)
  Sender: FDA-Public Use
  Company Number: FR-JNJFOC-20130610338

PATIENT
  Age: 86 Year
  Sex: Female

DRUGS (5)
  1. REMINYL [Suspect]
     Indication: DEMENTIA ALZHEIMER^S TYPE
     Route: 065
     Dates: start: 2008
  2. DETENSIEL [Suspect]
     Indication: HYPERTENSION
     Route: 065
     Dates: start: 2008
  3. DIGOXIN [Suspect]
     Indication: ARRHYTHMIA
     Route: 065
     Dates: start: 2008
  4. PREVISCAN (FLUINDIONE) [Suspect]
     Indication: ARRHYTHMIA
     Route: 065
     Dates: start: 2008
  5. LASILIX [Suspect]
     Indication: ARRHYTHMIA
     Route: 065
     Dates: start: 2008

REACTIONS (1)
  - Pemphigoid [Recovered/Resolved]
